FAERS Safety Report 25867680 (Version 1)
Quarter: 2025Q4

REPORT INFORMATION
  Report Type: Spontaneous
  Country: EU (occurrence: EU)
  Receive Date: 20251001
  Receipt Date: 20251001
  Transmission Date: 20260118
  Serious: Yes (Hospitalization, Other)
  Sender: HETERO
  Company Number: None

PATIENT
  Age: 58 Year
  Sex: Female

DRUGS (10)
  1. PREGABALIN [Suspect]
     Active Substance: PREGABALIN
     Indication: Scoliosis
     Dosage: 75 MG, BID
     Route: 065
  2. PREGABALIN [Suspect]
     Active Substance: PREGABALIN
     Indication: Pain
  3. METFORMIN [Suspect]
     Active Substance: METFORMIN HYDROCHLORIDE
     Indication: Type 2 diabetes mellitus
     Dosage: 850 MG, BID
     Route: 065
  4. IOPROMIDE [Suspect]
     Active Substance: IOPROMIDE
     Indication: Abdominal discomfort
     Dosage: UNK
     Route: 042
  5. ENALAPRIL [Concomitant]
     Active Substance: ENALAPRIL
     Indication: Chronic kidney disease
     Dosage: 20 MG, QD
     Route: 005
  6. ENALAPRIL [Concomitant]
     Active Substance: ENALAPRIL
     Indication: Hypertension
  7. EZETIMIBE [Concomitant]
     Active Substance: EZETIMIBE
     Indication: Dyslipidaemia
     Dosage: 10 MG, QD
     Route: 065
  8. FLUOXETINE [Concomitant]
     Active Substance: FLUOXETINE HYDROCHLORIDE
     Indication: Depression
     Dosage: 20 MG, QD
     Route: 065
  9. SIMVASTATIN [Concomitant]
     Active Substance: SIMVASTATIN
     Indication: Dyslipidaemia
     Dosage: 20 MG, QD
     Route: 065
  10. SITAGLIPTIN [Concomitant]
     Active Substance: SITAGLIPTIN
     Indication: Type 2 diabetes mellitus
     Dosage: 50 MG, BID
     Route: 065

REACTIONS (10)
  - Acute kidney injury [Recovered/Resolved]
  - Abdominal discomfort [Unknown]
  - Parkinsonism [Recovered/Resolved]
  - Reduced facial expression [Recovered/Resolved]
  - Bradyphrenia [Recovered/Resolved]
  - Somnolence [Recovered/Resolved]
  - Gait disturbance [Recovered/Resolved]
  - Musculoskeletal stiffness [Recovered/Resolved]
  - Malaise [Recovered/Resolved]
  - Labelled drug-disease interaction medication error [Unknown]
